FAERS Safety Report 5919895-5 (Version None)
Quarter: 2008Q4

REPORT INFORMATION
  Report Type: 
  Country: None (occurrence: None)
  Receive Date: 20081015
  Receipt Date: 20081006
  Transmission Date: 20090506
  Serious: Yes (Hospitalization, Disabling)
  Sender: FDA-Public Use
  Company Number: GB-AMGEN-US305451

PATIENT
  Sex: Male
  Weight: 75.6 kg

DRUGS (8)
  1. ENBREL [Suspect]
     Indication: RHEUMATOID ARTHRITIS
     Route: 058
     Dates: start: 20070823, end: 20071109
  2. METHOTREXATE [Suspect]
     Indication: RHEUMATOID ARTHRITIS
     Route: 048
     Dates: start: 19930101, end: 20071109
  3. ATORVASTATIN CALCIUM [Concomitant]
     Route: 048
  4. ALENDRONIC ACID [Concomitant]
  5. LANSOPRAZOLE [Concomitant]
  6. PREDNISOLONE [Concomitant]
  7. ORAMORPH SR [Concomitant]
     Dosage: AS REQUIRED
  8. VERAPAMIL [Concomitant]
     Route: 048

REACTIONS (2)
  - ALVEOLITIS ALLERGIC [None]
  - ORGANISING PNEUMONIA [None]
